FAERS Safety Report 9382795 (Version 2)
Quarter: 2013Q3

REPORT INFORMATION
  Report Type: Spontaneous
  Country: US (occurrence: US)
  Receive Date: 20130703
  Receipt Date: 20130731
  Transmission Date: 20140515
  Serious: Yes (Hospitalization, Other)
  Sender: FDA-Public Use
  Company Number: US-OTSUKA-US-2013-11262

PATIENT
  Sex: 0

DRUGS (11)
  1. ABILIFY MAINTENA [Suspect]
     Indication: SCHIZOAFFECTIVE DISORDER
     Dosage: 400 MG MILLIGRAM(S), UNK
     Route: 030
     Dates: start: 20130604
  2. ABILIFY [Suspect]
     Indication: SCHIZOAFFECTIVE DISORDER
     Dosage: 20 MG MILLIGRAM(S), QD
     Route: 048
     Dates: start: 20130603
  3. ABILIFY [Suspect]
     Dosage: 10 MG MILLIGRAM(S), QD
     Route: 048
  4. ZYPREXA [Suspect]
     Indication: PRODUCT USED FOR UNKNOWN INDICATION
     Dosage: 20 MG MILLIGRAM(S), UNK
     Route: 048
  5. LUVOX [Suspect]
     Indication: PRODUCT USED FOR UNKNOWN INDICATION
     Dosage: UNK
     Dates: end: 20130604
  6. RISPERDAL CONSTA [Concomitant]
     Indication: PRODUCT USED FOR UNKNOWN INDICATION
     Dosage: UNK
  7. TOPAMAX [Concomitant]
     Indication: PRODUCT USED FOR UNKNOWN INDICATION
     Dosage: 100 MG MILLIGRAM(S), UNK
  8. LAMICTAL [Concomitant]
     Indication: PRODUCT USED FOR UNKNOWN INDICATION
     Dosage: 200 MG MILLIGRAM(S), UNK
  9. SEROQUEL [Concomitant]
     Indication: PRODUCT USED FOR UNKNOWN INDICATION
     Dosage: 200 MG MILLIGRAM(S), UNK
  10. KLONOPIN [Concomitant]
     Indication: PRODUCT USED FOR UNKNOWN INDICATION
     Dosage: UNK
  11. AMBIEN [Concomitant]
     Indication: INSOMNIA
     Dosage: UNK

REACTIONS (5)
  - Serotonin syndrome [Unknown]
  - Elevated mood [Unknown]
  - Insomnia [Unknown]
  - Vision blurred [Unknown]
  - Chest discomfort [Unknown]
